FAERS Safety Report 6839150-9 (Version None)
Quarter: 2010Q3

REPORT INFORMATION
  Report Type: 
  Country: None (occurrence: None)
  Receive Date: 20100714
  Receipt Date: 20100704
  Transmission Date: 20110219
  Serious: Yes (Hospitalization, Other)
  Sender: FDA-Public Use
  Company Number: DE-TEVA-239968ISR

PATIENT
  Age: 70 Year
  Sex: Male

DRUGS (6)
  1. AZILECT [Suspect]
  2. ROTIGOTINE [Suspect]
     Dosage: 8 MG, WHICH WAS ENHANCED TO MAXIMAL DOSE OF 16 MG.
  3. HYDROCHLOROTHIAZIDE [Suspect]
  4. QUETIAPINE [Suspect]
  5. ANTIHYPERTENSIVE NOS [Concomitant]
  6. LEVODOPA [Concomitant]

REACTIONS (5)
  - ABNORMAL BEHAVIOUR [None]
  - CONFUSIONAL STATE [None]
  - HYPERHIDROSIS [None]
  - OEDEMA PERIPHERAL [None]
  - RHABDOMYOLYSIS [None]
